FAERS Safety Report 5374136-5 (Version None)
Quarter: 2007Q2

REPORT INFORMATION
  Report Type: 
  Country: None (occurrence: None)
  Receive Date: 20070627
  Receipt Date: 20070613
  Transmission Date: 20071010
  Serious: Yes (Death, Hospitalization)
  Sender: FDA-Public Use
  Company Number: GXKR2007BE05089

PATIENT
  Age: 71 Year
  Sex: Female

DRUGS (10)
  1. METHYLPREDNISOLONE [Suspect]
     Indication: TEMPORAL ARTERITIS
     Dosage: SEE IMAGE
  2. METHYLPREDNISOLONE [Suspect]
     Indication: TEMPORAL ARTERITIS
     Dosage: SEE IMAGE
  3. METHYLPREDNISOLONE [Suspect]
     Indication: TEMPORAL ARTERITIS
     Dosage: SEE IMAGE
  4. CALCIUM (NCH) (CALCIUM) UNKNOWN [Suspect]
     Dosage: 1000 MG
  5. VITAMIN D [Suspect]
     Dosage: 880 IU
  6. PHENPROCOUMON (NGX) (PHENPROCOUMON) UNKNOWN [Suspect]
  7. DIGOXIN [Concomitant]
  8. BISOPROLOL FUMARATE [Concomitant]
  9. ENALAPRIL MALEATE [Concomitant]
  10. HEPARIN [Concomitant]

REACTIONS (7)
  - BLOOD PARATHYROID HORMONE DECREASED [None]
  - BLOOD UREA INCREASED [None]
  - C-REACTIVE PROTEIN INCREASED [None]
  - CALCIPHYLAXIS [None]
  - CANDIDA SEPSIS [None]
  - DIARRHOEA [None]
  - WHITE BLOOD CELL COUNT INCREASED [None]
